FAERS Safety Report 16451151 (Version 2)
Quarter: 2019Q3

REPORT INFORMATION
  Report Type: Report from Study
  Country: MY (occurrence: MY)
  Receive Date: 20190619
  Receipt Date: 20190702
  Transmission Date: 20191004
  Serious: Yes (Hospitalization, Other)
  Sender: FDA-Public Use
  Company Number: MY-PFIZER INC-2019250554

PATIENT
  Age: 19 Year
  Sex: Female
  Weight: 98.5 kg

DRUGS (4)
  1. INOTUZUMAB OZOGAMICIN [Suspect]
     Active Substance: INOTUZUMAB OZOGAMICIN
     Indication: PRECURSOR B-LYMPHOBLASTIC LYMPHOMA REFRACTORY
     Dosage: 1.5 MG, WEEKLY
     Dates: start: 20190304
  2. INOTUZUMAB OZOGAMICIN [Suspect]
     Active Substance: INOTUZUMAB OZOGAMICIN
     Dosage: 1 MG, WEEKLY (WEEK 1)
  3. INOTUZUMAB OZOGAMICIN [Suspect]
     Active Substance: INOTUZUMAB OZOGAMICIN
     Dosage: 1.7 MG, D1
     Route: 042
     Dates: start: 20190508
  4. INOTUZUMAB OZOGAMICIN [Suspect]
     Active Substance: INOTUZUMAB OZOGAMICIN
     Dosage: 1 MG, WEEKLY (WEEK 2)

REACTIONS (4)
  - Pyrexia [Recovered/Resolved]
  - Nosocomial infection [Unknown]
  - Neutropenia [Unknown]
  - Immunosuppression [Unknown]

NARRATIVE: CASE EVENT DATE: 20190514
